FAERS Safety Report 9914452 (Version 1)
Quarter: 2014Q1

REPORT INFORMATION
  Report Type: Spontaneous
  Country: US (occurrence: None)
  Receive Date: 20140219
  Receipt Date: 20140219
  Transmission Date: 20141002
  Serious: Yes (Life-Threatening, Hospitalization, Disabling, Other)
  Sender: FDA-Public Use
  Company Number: None

PATIENT
  Age: 40 Year
  Sex: Male
  Weight: 72.58 kg

DRUGS (3)
  1. AXIRON [Suspect]
     Indication: FATIGUE
     Dosage: 1 PUMP EACH ARMPIT  ONCE DAILY  APPLIED TO A SURFACE, USUALLY THE SKIN
     Route: 061
     Dates: end: 20130704
  2. AXIRON [Suspect]
     Indication: MUSCULAR WEAKNESS
     Dosage: 1 PUMP EACH ARMPIT  ONCE DAILY  APPLIED TO A SURFACE, USUALLY THE SKIN
     Route: 061
     Dates: end: 20130704
  3. AXIRON [Suspect]
     Indication: BLOOD TESTOSTERONE DECREASED
     Dosage: 1 PUMP EACH ARMPIT  ONCE DAILY  APPLIED TO A SURFACE, USUALLY THE SKIN
     Route: 061
     Dates: end: 20130704

REACTIONS (4)
  - Myocardial infarction [None]
  - Coronary artery occlusion [None]
  - Mood altered [None]
  - Abdominal distension [None]
